FAERS Safety Report 9085520 (Version 2)
Quarter: 2013Q1

REPORT INFORMATION
  Report Type: Spontaneous
  Country: US (occurrence: US)
  Receive Date: 20130131
  Receipt Date: 20130227
  Transmission Date: 20140127
  Serious: Yes (Other)
  Sender: FDA-Public Use
  Company Number: US-TEVA-382075USA

PATIENT
  Sex: Male
  Weight: 59.02 kg

DRUGS (7)
  1. FENTORA [Suspect]
     Indication: MIGRAINE
     Dosage: 2400 MICROGRAM DAILY;
     Route: 002
  2. FENTORA [Suspect]
     Indication: GRAND MAL CONVULSION
  3. DEMEROL [Suspect]
  4. MORPHINE [Concomitant]
     Indication: CONVULSION
     Dosage: 60 MILLIGRAM DAILY;
     Route: 048
  5. KEPPRA [Concomitant]
     Indication: CONVULSION
     Dosage: 1500 MILLIGRAM DAILY;
     Route: 048
  6. FLEXERIL [Concomitant]
     Indication: MUSCLE SPASMS
     Dosage: 10 MILLIGRAM DAILY;
     Route: 048
  7. VALIUM [Concomitant]
     Dosage: 10 MILLIGRAM DAILY;
     Route: 048

REACTIONS (3)
  - Convulsion [Unknown]
  - Drug prescribing error [Unknown]
  - Off label use [Unknown]
